FAERS Safety Report 9511485 (Version 1)
Quarter: 2013Q3

REPORT INFORMATION
  Report Type: Spontaneous
  Country: US (occurrence: None)
  Receive Date: 20130906
  Receipt Date: 20130906
  Transmission Date: 20140515
  Serious: Yes (Hospitalization)
  Sender: FDA-Public Use
  Company Number: 20130455

PATIENT
  Sex: Female

DRUGS (1)
  1. VENOFER [Suspect]
     Indication: MALABSORPTION

REACTIONS (2)
  - Off label use [None]
  - Myalgia [None]
